FAERS Safety Report 20135929 (Version 1)
Quarter: 2021Q4

REPORT INFORMATION
  Report Type: Spontaneous
  Country: GB (occurrence: GB)
  Receive Date: 20211201
  Receipt Date: 20211201
  Transmission Date: 20220303
  Serious: Yes (Other)
  Sender: FDA-Public Use
  Company Number: None

PATIENT
  Age: 31 Year
  Sex: Male
  Weight: 77 kg

DRUGS (5)
  1. PENICILLIN V [Suspect]
     Active Substance: PENICILLIN V
     Indication: Ill-defined disorder
     Dosage: TAKE TWO QID FOR 10 DAYS
     Route: 065
     Dates: start: 20211102, end: 20211109
  2. PENICILLIN V [Suspect]
     Active Substance: PENICILLIN V
     Dosage: UNK
     Route: 065
     Dates: start: 20211105
  3. CLARITHROMYCIN [Concomitant]
     Active Substance: CLARITHROMYCIN
     Indication: Ill-defined disorder
     Dosage: 1, Q12H
     Route: 065
     Dates: start: 20211105, end: 20211112
  4. HYDROCORTISONE [Concomitant]
     Active Substance: HYDROCORTISONE
     Indication: Ill-defined disorder
     Dosage: UNAPPLY THINLY TO THE AFFECTED AREA(S) BID
     Route: 065
     Dates: start: 20211105, end: 20211112
  5. KETOCONAZOLE [Concomitant]
     Active Substance: KETOCONAZOLE
     Indication: Ill-defined disorder
     Dosage: UNK, TIW TIL SYMPTOMS SETTLE. T...
     Route: 065
     Dates: start: 20211105

REACTIONS (1)
  - Adverse drug reaction [Recovered/Resolved]

NARRATIVE: CASE EVENT DATE: 20211105
